FAERS Safety Report 25286829 (Version 1)
Quarter: 2025Q2

REPORT INFORMATION
  Report Type: Spontaneous
  Country: FR (occurrence: FR)
  Receive Date: 20250509
  Receipt Date: 20250509
  Transmission Date: 20250717
  Serious: Yes (Other)
  Sender: CHEPLAPHARM
  Company Number: None

PATIENT
  Age: 70 Year
  Sex: Male
  Weight: 72 kg

DRUGS (6)
  1. HYDROXYUREA [Suspect]
     Active Substance: HYDROXYUREA
     Indication: Polycythaemia vera
     Dosage: DAILY DOSE: 500 MILLIGRAM
     Route: 048
     Dates: start: 20241104, end: 20241202
  2. PRISTINAMYCIN [Suspect]
     Active Substance: PRISTINAMYCIN
     Indication: Lung disorder
     Route: 048
     Dates: start: 20241125, end: 20241127
  3. BACLOFEN [Concomitant]
     Active Substance: BACLOFEN
  4. DALFAMPRIDINE [Concomitant]
     Active Substance: DALFAMPRIDINE
  5. SOLIFENACIN [Concomitant]
     Active Substance: SOLIFENACIN
  6. ASPIRIN LYSINE [Concomitant]
     Active Substance: ASPIRIN LYSINE

REACTIONS (4)
  - Rash maculo-papular [Recovered/Resolved]
  - Pneumonia [Unknown]
  - Drug eruption [Unknown]
  - Inflammation [Unknown]

NARRATIVE: CASE EVENT DATE: 20241126
